FAERS Safety Report 21463391 (Version 2)
Quarter: 2023Q1

REPORT INFORMATION
  Report Type: Report from Study
  Country: US (occurrence: US)
  Receive Date: 20221017
  Receipt Date: 20230104
  Transmission Date: 20230418
  Serious: No
  Sender: FDA-Public Use
  Company Number: US-ABBVIE-4144271

PATIENT
  Age: 82 Year
  Sex: Male
  Weight: 78.017 kg

DRUGS (29)
  1. HUMIRA [Suspect]
     Active Substance: ADALIMUMAB
     Indication: Rheumatoid arthritis
     Dosage: CF
     Route: 058
     Dates: start: 201601, end: 2022
  2. LUPRON DEPOT [Suspect]
     Active Substance: LEUPROLIDE ACETATE
     Indication: Product used for unknown indication
     Route: 065
  3. coenzyme O10 [Concomitant]
     Indication: Product used for unknown indication
     Dosage: TAKE 200 MG BY MOUTH. 1 CAPSULE BY MOUTH EVERY DAY
  4. fluticasone propion-salmeterol [Concomitant]
     Indication: Product used for unknown indication
     Dosage: INHALE 2 PUFFS INTO THE LUNGS EVERY 12 (TWELVE) HOURS. CONTROLLER
  5. HYDROXYCHLOROQUINE [Concomitant]
     Active Substance: HYDROXYCHLOROQUINE
     Indication: Product used for unknown indication
     Dosage: TAKE 1 TABLET (200 MG TOTAL) BY MOUTH ONCE DAILY.
  6. FUROSEMIDE [Concomitant]
     Active Substance: FUROSEMIDE
     Indication: Product used for unknown indication
     Dosage: TAKE 1 TABLET (40 MG TOTAL) BY MOUTH EVERY MON, TUES, WED, THURS, FRI.
  7. OMEPRAZOLE [Concomitant]
     Active Substance: OMEPRAZOLE
     Indication: Product used for unknown indication
     Route: 048
  8. ABIRATERONE [Concomitant]
     Active Substance: ABIRATERONE
     Indication: Product used for unknown indication
     Dosage: TAKE 4 TABLETS (1,000 MG TOTAL) BY MOUTH ONCE DAILY.
  9. FERROUS GLUCONATE [Concomitant]
     Active Substance: FERROUS GLUCONATE
     Indication: Product used for unknown indication
     Dosage: TAKE 324 MG BY MOUTH DAILY WITH BREAKFAST.
  10. MAGNESIUM GLUCONATE [Concomitant]
     Active Substance: MAGNESIUM GLUCONATE
     Indication: Product used for unknown indication
     Dosage: 500 TAKE 2 TABLETS BY MOUTH ONCE DAILY
  11. ASPIRIN [Concomitant]
     Active Substance: ASPIRIN
     Indication: Product used for unknown indication
     Dosage: TAKE 81 MG BY MOUTH ONCE DAILY
  12. RED YEAST RICE ORAL [Concomitant]
     Indication: Product used for unknown indication
  13. ALBUTEROL [Concomitant]
     Active Substance: ALBUTEROL
     Indication: Product used for unknown indication
     Dosage: TAKE 3 MLS BY NEBULIZATION EVERY 4 TO 6 HOURS AS NEEDED FOR WHEEZING OR SHORTNESS OF BREATH
  14. VITAMIN D3 [Concomitant]
     Active Substance: CHOLECALCIFEROL
     Indication: Product used for unknown indication
     Dosage: TAKE 5,000 UNITS BY MOUTH 2 (TWO) TIMES A DAY.
  15. METOPROLOL SUCCINATE [Concomitant]
     Active Substance: METOPROLOL SUCCINATE
     Indication: Product used for unknown indication
     Dosage: TAKE 1 TABLET (50 MG TOTAL) BY MOUTH ONCE DAILY
  16. PREDNISONE [Concomitant]
     Active Substance: PREDNISONE
     Indication: Product used for unknown indication
  17. calcium citrate vitamin [Concomitant]
     Indication: Product used for unknown indication
     Dosage: TAKE 2 TABLETS BY MOUTH ONCE DAILY
  18. AZITHROMYCIN [Concomitant]
     Active Substance: AZITHROMYCIN
     Indication: Product used for unknown indication
     Dosage: 500 MG ON DAY 1 (TWO TABLETS) FOLLOWED BY 250 MG ONCE DAILY ON DAYS 2-5
  19. LOSARTAN [Concomitant]
     Active Substance: LOSARTAN
     Indication: Product used for unknown indication
     Dosage: TAKE 1 TABLET BY MOUTH EVERY DAY
  20. NIACIN [Concomitant]
     Active Substance: NIACIN
     Indication: Product used for unknown indication
  21. LYSINE [Concomitant]
     Active Substance: LYSINE
     Indication: Product used for unknown indication
     Dosage: TAKE 1,000 MG BY MOUTH ONCE DAILY.
  22. ACETAMINOPHEN\HYDROCODONE [Concomitant]
     Active Substance: ACETAMINOPHEN\HYDROCODONE
     Indication: Product used for unknown indication
     Dosage: 325 MG PER TAKE 1 TABLET BY MOUTH EVERY 12 (TWELVE) HOURS AS NEEDED FOR PAIN
  23. ALBUTEROL [Concomitant]
     Active Substance: ALBUTEROL
     Indication: Product used for unknown indication
     Dosage: INHALE 2 PUFFS INTO THE LUNGS EVERY 4 HR FOR WHEEZING OR SHORTNESS OF BREATH (BEFORE EXERCISE).
  24. PREDNISONE [Concomitant]
     Active Substance: PREDNISONE
     Indication: Product used for unknown indication
     Route: 048
  25. PREDNISONE [Concomitant]
     Active Substance: PREDNISONE
     Indication: Product used for unknown indication
     Route: 048
  26. PREDNISONE [Concomitant]
     Active Substance: PREDNISONE
     Indication: Product used for unknown indication
     Route: 048
  27. PREDNISONE [Concomitant]
     Active Substance: PREDNISONE
     Indication: Product used for unknown indication
     Route: 048
  28. CYANOCOBALAMIN [Concomitant]
     Active Substance: CYANOCOBALAMIN
     Indication: Product used for unknown indication
     Dosage: TAKE 2 TABLETS BY MOUTH ONCE DAILY. 2 TABLET BY MOUTH EVERY DAY
  29. BUDESONIDE\FORMOTEROL [Concomitant]
     Active Substance: BUDESONIDE\FORMOTEROL
     Indication: Product used for unknown indication
     Dosage: INHALE 2 PUFFS INTO THE LUNGS 2 (TWO) TIMES DAILY. RINSE MOUTH AFTER USE

REACTIONS (2)
  - Arthralgia [Recovered/Resolved]
  - Therapeutic response shortened [Unknown]

NARRATIVE: CASE EVENT DATE: 20220701
